FAERS Safety Report 18725920 (Version 1)
Quarter: 2021Q1

REPORT INFORMATION
  Report Type: Spontaneous
  Country: FR (occurrence: FR)
  Receive Date: 20210111
  Receipt Date: 20210111
  Transmission Date: 20210419
  Serious: Yes (Death, Other)
  Sender: FDA-Public Use
  Company Number: FR-009507513-2101FRA003585

PATIENT
  Age: 57 Year
  Sex: Female

DRUGS (4)
  1. CONTRAMAL [Suspect]
     Active Substance: TRAMADOL HYDROCHLORIDE
     Indication: INTENTIONAL PRODUCT MISUSE
     Dosage: UNKNOWN
     Route: 065
     Dates: end: 2019
  2. ACETAMINOPHEN. [Suspect]
     Active Substance: ACETAMINOPHEN
     Indication: INTENTIONAL PRODUCT MISUSE
     Dosage: UNKNOWN
     Route: 065
     Dates: end: 2019
  3. OXAZEPAM. [Suspect]
     Active Substance: OXAZEPAM
     Indication: INTENTIONAL PRODUCT MISUSE
     Dosage: UNKNOWN
     Route: 065
     Dates: end: 2019
  4. MIRTAZAPINE. [Suspect]
     Active Substance: MIRTAZAPINE
     Dosage: UNKNOWN
     Route: 065
     Dates: end: 2019

REACTIONS (2)
  - Poisoning deliberate [Fatal]
  - Respiratory depression [Fatal]
